FAERS Safety Report 13669831 (Version 1)
Quarter: 2017Q2

REPORT INFORMATION
  Report Type: Spontaneous
  Country: US (occurrence: US)
  Receive Date: 20170620
  Receipt Date: 20170620
  Transmission Date: 20170830
  Serious: No
  Sender: FDA-Public Use
  Company Number: US-BRAEBURN PHARMACEUTICALS, INC.-2017BBN00040

PATIENT
  Sex: Male

DRUGS (1)
  1. PROBUPHINE [Suspect]
     Active Substance: BUPRENORPHINE HYDROCHLORIDE

REACTIONS (6)
  - Stress [Not Recovered/Not Resolved]
  - Difficulty removing drug implant [Not Recovered/Not Resolved]
  - Implant site scar [Not Recovered/Not Resolved]
  - Foreign body [Not Recovered/Not Resolved]
  - Emotional distress [Not Recovered/Not Resolved]
  - Incorrect drug administration duration [Not Recovered/Not Resolved]

NARRATIVE: CASE EVENT DATE: 2017
